FAERS Safety Report 15672963 (Version 1)
Quarter: 2018Q4

REPORT INFORMATION
  Report Type: Report from Study
  Country: US (occurrence: US)
  Receive Date: 20181129
  Receipt Date: 20181129
  Transmission Date: 20190205
  Serious: Yes (Life-Threatening, Other)
  Sender: FDA-Public Use
  Company Number: US-TESARO, INC-US-2018TSO01985

PATIENT
  Sex: Female

DRUGS (3)
  1. ZEJULA [Suspect]
     Active Substance: NIRAPARIB
     Indication: OVARIAN CANCER
     Dosage: 200 MG, QD
     Route: 048
     Dates: start: 20180303, end: 20180413
  2. ZEJULA [Suspect]
     Active Substance: NIRAPARIB
     Dosage: 100 MG, QD
     Route: 048
     Dates: start: 20180504
  3. ZEJULA [Suspect]
     Active Substance: NIRAPARIB
     Dosage: 300 MG, QD
     Route: 048

REACTIONS (10)
  - Haematocrit decreased [Unknown]
  - Stress at work [Not Recovered/Not Resolved]
  - Red blood cell count decreased [Unknown]
  - Platelet count decreased [Not Recovered/Not Resolved]
  - Haemoglobin decreased [Unknown]
  - Insomnia [Recovering/Resolving]
  - Blood count abnormal [Not Recovered/Not Resolved]
  - Osteoporosis [Not Recovered/Not Resolved]
  - Laboratory test abnormal [Unknown]
  - Intentional underdose [Unknown]

NARRATIVE: CASE EVENT DATE: 2018
